FAERS Safety Report 16063932 (Version 1)
Quarter: 2019Q1

REPORT INFORMATION
  Report Type: Spontaneous
  Country: GB (occurrence: GB)
  Receive Date: 20190312
  Receipt Date: 20190312
  Transmission Date: 20190418
  Serious: Yes (Other)
  Sender: FDA-Public Use
  Company Number: GB-JNJFOC-20190309005

PATIENT
  Age: 7 Year
  Sex: Male
  Weight: 25.4 kg

DRUGS (1)
  1. OXYBUTYNIN. [Suspect]
     Active Substance: OXYBUTYNIN CHLORIDE
     Indication: ENURESIS
     Route: 048
     Dates: start: 20180213, end: 20190106

REACTIONS (1)
  - Aggression [Recovered/Resolved]
